FAERS Safety Report 4686727-5 (Version None)
Quarter: 2005Q2

REPORT INFORMATION
  Report Type: 
  Country: None (occurrence: None)
  Receive Date: 20050608
  Receipt Date: 20050526
  Transmission Date: 20051028
  Serious: Yes (Other)
  Sender: FDA-Public Use
  Company Number: 2005079108

PATIENT
  Sex: Female

DRUGS (1)
  1. DEPO-PROVERA [Suspect]
     Indication: CONTRACEPTION
     Dosage: (SINGLE INJECTION), INTRAMUSCULAR
     Route: 030

REACTIONS (4)
  - ANAEMIA [None]
  - INFERTILITY [None]
  - MENORRHAGIA [None]
  - MENSTRUAL DISORDER [None]
